FAERS Safety Report 7809547-9 (Version None)
Quarter: 2011Q4

REPORT INFORMATION
  Report Type: 
  Country: None (occurrence: None)
  Receive Date: 20111012
  Receipt Date: 20111010
  Transmission Date: 20120403
  Serious: Yes (Death)
  Sender: FDA-Public Use
  Company Number: PHFR2011GB05625

PATIENT
  Sex: Male

DRUGS (2)
  1. CLOZAPINE [Suspect]
     Indication: SCHIZOPHRENIA
     Dosage: 725 MG/DAY
     Route: 048
     Dates: start: 20070319
  2. DEPAKOTE [Concomitant]
     Dosage: 1000 MG/DAY
     Route: 048

REACTIONS (6)
  - INTESTINAL OBSTRUCTION [None]
  - CONSTIPATION [None]
  - PNEUMONIA ASPIRATION [None]
  - MALAISE [None]
  - ABDOMINAL PAIN [None]
  - EMPHYSEMA [None]
